FAERS Safety Report 15700069 (Version 1)
Quarter: 2018Q4

REPORT INFORMATION
  Report Type: Spontaneous
  Country: US (occurrence: US)
  Receive Date: 20181207
  Receipt Date: 20181207
  Transmission Date: 20190205
  Serious: Yes (Other)
  Sender: FDA-Public Use
  Company Number: US-PFIZER INC-2018499666

PATIENT
  Age: 63 Year
  Sex: Male
  Weight: 70.76 kg

DRUGS (1)
  1. ARTHROTEC [Suspect]
     Active Substance: DICLOFENAC SODIUM\MISOPROSTOL
     Indication: ARTHRITIS
     Dosage: 75 MG, 2X/DAY
     Route: 048
     Dates: start: 2011

REACTIONS (9)
  - Scoliosis [Unknown]
  - Cardiac disorder [Unknown]
  - Limb discomfort [Unknown]
  - Body height decreased [Unknown]
  - Back pain [Unknown]
  - Hypoaesthesia [Unknown]
  - Condition aggravated [Unknown]
  - Spinal deformity [Unknown]
  - Feeling cold [Unknown]

NARRATIVE: CASE EVENT DATE: 2015
